FAERS Safety Report 6388012-2 (Version None)
Quarter: 2009Q3

REPORT INFORMATION
  Report Type: 
  Country: None (occurrence: None)
  Receive Date: 20090930
  Receipt Date: 20090901
  Transmission Date: 20100115
  Serious: Yes (Hospitalization, Other)
  Sender: FDA-Public Use
  Company Number: 20520061141

PATIENT
  Sex: Female

DRUGS (3)
  1. DYSPORT [Suspect]
     Indication: MYOFASCIAL PAIN SYNDROME
     Dosage: SINGLE CYCLE, INTRAMUSCULAR/SINGLE CYCLE
     Route: 030
     Dates: start: 20060619, end: 20060619
  2. NSAID (NSAID'S) [Concomitant]
  3. DIGESTIVES (DIGESTIVES, INCL ENZYMES) [Concomitant]

REACTIONS (4)
  - ABORTION SPONTANEOUS [None]
  - DRUG EXPOSURE DURING PREGNANCY [None]
  - PREGNANCY [None]
  - VAGINAL HAEMORRHAGE [None]
